FAERS Safety Report 7034426-7 (Version None)
Quarter: 2010Q4

REPORT INFORMATION
  Report Type: 
  Country: None (occurrence: None)
  Receive Date: 20101008
  Receipt Date: 20100928
  Transmission Date: 20110411
  Serious: Yes (Other)
  Sender: FDA-Public Use
  Company Number: PHHY2010FI57352

PATIENT
  Age: 50 Year
  Sex: Female

DRUGS (3)
  1. LEPONEX [Suspect]
     Dosage: 400 MG, QD
  2. LEPONEX [Suspect]
     Dosage: UNK
  3. LAMICTAL [Concomitant]

REACTIONS (2)
  - ELECTROCARDIOGRAM QT PROLONGED [None]
  - MENTAL DISORDER [None]
